APPROVED DRUG PRODUCT: TRETINOIN
Active Ingredient: TRETINOIN
Strength: 0.01%
Dosage Form/Route: GEL;TOPICAL
Application: A217588 | Product #001 | TE Code: AB
Applicant: ENCUBE ETHICALS PRIVATE LTD
Approved: Mar 3, 2025 | RLD: No | RS: No | Type: RX